FAERS Safety Report 13244024 (Version 1)
Quarter: 2017Q1

REPORT INFORMATION
  Report Type: Spontaneous
  Country: US (occurrence: US)
  Receive Date: 20170217
  Receipt Date: 20170217
  Transmission Date: 20170428
  Serious: Yes (Hospitalization)
  Sender: FDA-Public Use
  Company Number: US-ASTRAZENECA-2017SE16801

PATIENT
  Age: 56 Year
  Sex: Male
  Weight: 105.7 kg

DRUGS (10)
  1. TRAZODONE [Concomitant]
     Active Substance: TRAZODONE HYDROCHLORIDE
     Indication: INSOMNIA
     Route: 048
  2. DALIRESP [Suspect]
     Active Substance: ROFLUMILAST
     Indication: CHRONIC OBSTRUCTIVE PULMONARY DISEASE
     Route: 048
     Dates: start: 201701
  3. XANAX [Concomitant]
     Active Substance: ALPRAZOLAM
     Indication: PANIC ATTACK
     Dosage: 1 MG OR 0.5 MG PER DOSE THREE TIMES A DAY
     Route: 048
     Dates: start: 2015
  4. REMERON [Concomitant]
     Active Substance: MIRTAZAPINE
     Indication: DEPRESSION
     Route: 048
     Dates: start: 2007
  5. PREDNISONE. [Concomitant]
     Active Substance: PREDNISONE
     Indication: DYSPNOEA
     Route: 048
     Dates: start: 2014
  6. OXYGEN. [Concomitant]
     Active Substance: OXYGEN
     Dosage: 2 L/MIN
  7. SYMBICORT [Suspect]
     Active Substance: BUDESONIDE\FORMOTEROL FUMARATE DIHYDRATE
     Indication: CHRONIC OBSTRUCTIVE PULMONARY DISEASE
     Dosage: 160/4.5 MCG, TWO INHALATIONS TWICE A DAY
     Route: 055
     Dates: start: 2014
  8. OXYGEN. [Concomitant]
     Active Substance: OXYGEN
     Indication: OXYGEN SATURATION ABNORMAL
     Dosage: CONTINUOUSLY
     Route: 055
     Dates: start: 2014
  9. LEXAPRO [Concomitant]
     Active Substance: ESCITALOPRAM OXALATE
     Indication: DEPRESSION
     Route: 048
     Dates: start: 2007
  10. SPIRIVA [Concomitant]
     Active Substance: TIOTROPIUM BROMIDE MONOHYDRATE
     Indication: PROPHYLAXIS
     Dosage: DAILY
     Route: 065
     Dates: start: 2014

REACTIONS (19)
  - Cardiac failure congestive [Unknown]
  - Gallbladder pain [Recovered/Resolved]
  - Chronic obstructive pulmonary disease [Unknown]
  - Liver disorder [Unknown]
  - White blood cell count increased [Unknown]
  - Panic attack [Unknown]
  - Hepatitis C RNA fluctuation [Unknown]
  - Insomnia [Not Recovered/Not Resolved]
  - Anxiety [Not Recovered/Not Resolved]
  - Weight fluctuation [Unknown]
  - Immune system disorder [Unknown]
  - Oxygen saturation decreased [Not Recovered/Not Resolved]
  - Drug dependence [Unknown]
  - Dyspnoea [Unknown]
  - Total lung capacity abnormal [Unknown]
  - Abdominal pain upper [Not Recovered/Not Resolved]
  - Fear of death [Unknown]
  - Lung infection [Recovered/Resolved]
  - Lung disorder [Unknown]

NARRATIVE: CASE EVENT DATE: 2014
